FAERS Safety Report 5206202-9 (Version None)
Quarter: 2007Q1

REPORT INFORMATION
  Report Type: 
  Country: None (occurrence: None)
  Receive Date: 20070109
  Receipt Date: 20070102
  Transmission Date: 20070707
  Serious: Yes (Death)
  Sender: FDA-Public Use
  Company Number: 234621

PATIENT
  Age: 56 Year
  Sex: Male

DRUGS (14)
  1. AVASTIN [Suspect]
     Indication: HEPATIC NEOPLASM MALIGNANT
     Dosage: 10 MG/KG, Q2W, INTRAVENOUS
     Route: 042
     Dates: start: 20060914
  2. ERLOTINIB (ERLOTINIB) TABLET, 100MG [Suspect]
     Indication: HEPATIC NEOPLASM MALIGNANT
     Dosage: 150 MG, QD, ORAL
     Route: 048
     Dates: start: 20060923
  3. DILAUDID [Concomitant]
  4. OXYCONTIN [Concomitant]
  5. VICODIN [Concomitant]
  6. SLOW-MAG (MAGNESIUM CHLORIDE) [Concomitant]
  7. PHENERGAN (PROMETHAZINE HYDROCHLORIDE) [Concomitant]
  8. PREVACID [Concomitant]
  9. MARINOL [Concomitant]
  10. TUSSINEX (UNK INGREDIENTS) (GENERIC COMPONENT (S) NOT KNOWN) [Concomitant]
  11. REGLAN [Concomitant]
  12. NAPROXEN [Concomitant]
  13. COMPAZINE [Concomitant]
  14. VIAGRA [Concomitant]

REACTIONS (13)
  - ASPIRATION [None]
  - BLOOD CREATININE INCREASED [None]
  - BLOOD UREA INCREASED [None]
  - DECREASED ACTIVITY [None]
  - DISEASE PROGRESSION [None]
  - GASTROINTESTINAL HAEMORRHAGE [None]
  - GENERAL PHYSICAL HEALTH DETERIORATION [None]
  - HAEMATEMESIS [None]
  - HAEMODYNAMIC INSTABILITY [None]
  - MULTI-ORGAN FAILURE [None]
  - PULMONARY OEDEMA [None]
  - TACHYCARDIA [None]
  - TACHYPNOEA [None]
